FAERS Safety Report 4402765-1 (Version None)
Quarter: 2004Q3

REPORT INFORMATION
  Report Type: 
  Country: None (occurrence: None)
  Receive Date: 20040721
  Receipt Date: 20040426
  Transmission Date: 20050211
  Serious: No
  Sender: FDA-Public Use
  Company Number: US-BRISTOL-MYERS SQUIBB COMPANY-12570958

PATIENT
  Age: 53 Year
  Sex: Female
  Weight: 103 kg

DRUGS (7)
  1. ESTRACE [Suspect]
     Indication: HORMONE REPLACEMENT THERAPY
     Route: 048
     Dates: start: 19970101
  2. METHOTREXATE [Suspect]
     Indication: SYSTEMIC LUPUS ERYTHEMATOSUS
     Dates: start: 20040101, end: 20040101
  3. HYDROXYCHLOROQUINE SULFATE [Concomitant]
  4. CELECOXIB [Concomitant]
  5. CLONAZEPAM [Concomitant]
  6. CITALOPRAM HYDROBROMIDE [Concomitant]
  7. FOLIC ACID [Concomitant]

REACTIONS (2)
  - BREAST TENDERNESS [None]
  - NIPPLE PAIN [None]
